FAERS Safety Report 5250775-7 (Version None)
Quarter: 2007Q1

REPORT INFORMATION
  Report Type: 
  Country: None (occurrence: None)
  Receive Date: 20070228
  Receipt Date: 20070213
  Transmission Date: 20070707
  Serious: Yes (Hospitalization)
  Sender: FDA-Public Use
  Company Number: HQWYE652114FEB07

PATIENT
  Sex: Male

DRUGS (4)
  1. ETANERCEPT [Suspect]
     Indication: RHEUMATOID ARTHRITIS
     Dosage: UNKNOWN
     Route: 058
  2. ETANERCEPT [Suspect]
     Dosage: UNKNOWN
     Route: 058
  3. AZATHIOPRINE [Concomitant]
  4. METHOTREXATE [Concomitant]

REACTIONS (6)
  - ATRIAL FIBRILLATION [None]
  - OEDEMA PERIPHERAL [None]
  - PERICARDITIS RHEUMATIC [None]
  - PNEUMONIA [None]
  - RHEUMATOID ARTHRITIS [None]
  - VASCULITIS [None]
